FAERS Safety Report 5268273-3 (Version None)
Quarter: 2007Q1

REPORT INFORMATION
  Report Type: 
  Country: None (occurrence: None)
  Receive Date: 20070314
  Receipt Date: 20070314
  Transmission Date: 20070707
  Serious: Yes (Death, Life-Threatening)
  Sender: FDA-Public Use
  Company Number: None

PATIENT
  Age: 44 Year
  Sex: Female

DRUGS (8)
  1. HURRICAINE SPRAY [Suspect]
     Indication: LOCAL ANAESTHESIA
     Dosage: ONE TIME USE
  2. MEPERIDINE HCL [Concomitant]
  3. MIDAZOLAM HCL [Concomitant]
  4. DIPHENHYDRAMINE HCL [Concomitant]
  5. ROMAZICON [Concomitant]
  6. NALOXONE [Concomitant]
  7. ATROPINE [Concomitant]
  8. CEFAZOLIN [Concomitant]

REACTIONS (3)
  - METHAEMOGLOBINAEMIA [None]
  - PROCEDURAL COMPLICATION [None]
  - RESPIRATORY ARREST [None]
